FAERS Safety Report 5637293-9 (Version None)
Quarter: 2008Q1

REPORT INFORMATION
  Report Type: 
  Country: None (occurrence: None)
  Receive Date: 20080225
  Receipt Date: 20080218
  Transmission Date: 20080703
  Serious: Yes (Hospitalization)
  Sender: FDA-Public Use
  Company Number: CH-AVENTIS-200810551GDDC

PATIENT
  Age: 62 Year
  Sex: Female

DRUGS (11)
  1. DOCETAXEL [Suspect]
     Indication: NON-SMALL CELL LUNG CANCER
     Route: 042
     Dates: start: 20071217, end: 20071217
  2. CISPLATIN [Suspect]
     Indication: NON-SMALL CELL LUNG CANCER
     Route: 042
     Dates: start: 20071217, end: 20071217
  3. CINNAGERON [Concomitant]
  4. BETASERC [Concomitant]
  5. GUTRON [Concomitant]
  6. LEXOTANIL [Concomitant]
  7. ASPIRIN [Concomitant]
  8. EMEND [Concomitant]
  9. EMEND [Concomitant]
  10. ZOFRAN [Concomitant]
  11. METOCLOPRAMIDE HCL [Concomitant]

REACTIONS (6)
  - DIARRHOEA [None]
  - FEBRILE NEUTROPENIA [None]
  - GENERAL PHYSICAL HEALTH DETERIORATION [None]
  - NAUSEA [None]
  - RENAL FAILURE ACUTE [None]
  - VOMITING [None]
